FAERS Safety Report 7990010-X (Version None)
Quarter: 2011Q4

REPORT INFORMATION
  Report Type: 
  Country: None (occurrence: None)
  Receive Date: 20111219
  Receipt Date: 20110513
  Transmission Date: 20120403
  Serious: No
  Sender: FDA-Public Use
  Company Number: US-ASTRAZENECA-2011SE26122

PATIENT
  Age: 20737 Day
  Sex: Male
  Weight: 83.9 kg

DRUGS (8)
  1. LIPITOR [Concomitant]
  2. MULTI-VITAMINS [Concomitant]
  3. CRESTOR [Suspect]
     Route: 048
  4. ASPIRIN [Concomitant]
  5. EYE DROPS [Concomitant]
     Indication: GLAUCOMA
  6. CRESTOR [Suspect]
     Route: 048
     Dates: start: 20070101, end: 20110430
  7. VITAMIN B-12 [Concomitant]
  8. VISOLPROL [Concomitant]

REACTIONS (5)
  - PAIN IN EXTREMITY [None]
  - DIARRHOEA [None]
  - BACK PAIN [None]
  - MUSCULOSKELETAL STIFFNESS [None]
  - WEIGHT DECREASED [None]
